FAERS Safety Report 8055060-6 (Version None)
Quarter: 2012Q1

REPORT INFORMATION
  Report Type: 
  Country: None (occurrence: None)
  Receive Date: 20120119
  Receipt Date: 20120117
  Transmission Date: 20120608
  Serious: Yes (Other)
  Sender: FDA-Public Use
  Company Number: GB-PFIZER INC-2011113657

PATIENT
  Age: 64 Year
  Sex: Male
  Weight: 101 kg

DRUGS (21)
  1. PERINDOPRIL ERBUMINE [Concomitant]
     Indication: MYOCARDIAL ISCHAEMIA
     Dosage: 5 MG, UNK
     Route: 048
     Dates: start: 20090601
  2. CLOBETASOL PROPIONATE [Concomitant]
     Indication: PSORIASIS
  3. PEPPERMINT OIL [Concomitant]
  4. PETHIDINE [Concomitant]
     Indication: PAIN
     Dosage: 100 MG, UNK
  5. MORPHINE [Concomitant]
     Dosage: UNK
  6. CLOPIDOGREL [Concomitant]
     Indication: CARDIAC DISORDER
     Dosage: 75 MG, 1X/DAY
  7. ACHILLEA MILLEFOLIUM [Concomitant]
     Dosage: UNK
  8. PROPRANOLOL [Concomitant]
     Dosage: UNK
  9. PARACETAMOL [Concomitant]
     Indication: PAIN
     Dosage: 500 MG, UNK
  10. RAMIPRIL [Suspect]
     Indication: CARDIAC DISORDER
     Dosage: 2.5 MG, 1X/DAY
     Route: 048
  11. BISOPROLOL [Suspect]
     Indication: ACUTE MYOCARDIAL INFARCTION
  12. PERINDOPRIL ARGININE [Concomitant]
     Indication: MYOCARDIAL ISCHAEMIA
     Dosage: 5 MG, UNK
     Dates: start: 20090601
  13. ROSUVASTATIN [Concomitant]
     Dosage: 10 MG, 1X/DAY
  14. PSYLLIUM HUSK [Concomitant]
     Indication: IRRITABLE BOWEL SYNDROME
  15. BISOPROLOL [Suspect]
     Indication: MYOCARDIAL ISCHAEMIA
     Dosage: 2.5 MG, 1X/DAY
     Route: 048
     Dates: start: 20081101, end: 20100801
  16. ASPIRIN [Concomitant]
     Indication: MYOCARDIAL ISCHAEMIA
     Dosage: 75 MG, 1X/DAY
     Route: 048
     Dates: start: 20081101
  17. HYDROMOL [Concomitant]
     Indication: PSORIASIS
  18. IBUPROFEN [Concomitant]
     Indication: PAIN
     Dosage: 600 MG, UNK
  19. NEBIVOLOL [Suspect]
     Dosage: 5 MG, UNK
     Route: 048
     Dates: start: 20100209
  20. TRAMADOL [Concomitant]
     Indication: PAIN
     Dosage: 100 MG, UNK
  21. LACTOBACILLUS [Concomitant]
     Indication: IRRITABLE BOWEL SYNDROME
     Dosage: UNK

REACTIONS (5)
  - LIGAMENT INJURY [None]
  - JOINT SWELLING [None]
  - FALL [None]
  - OSTEOARTHRITIS [None]
  - PSORIASIS [None]
